FAERS Safety Report 25240348 (Version 1)
Quarter: 2025Q2

REPORT INFORMATION
  Report Type: Spontaneous
  Country: JP (occurrence: JP)
  Receive Date: 20250425
  Receipt Date: 20250425
  Transmission Date: 20250717
  Serious: Yes (Other)
  Sender: ELI LILLY AND COMPANY
  Company Number: JP-Merck Healthcare KGaA-2025018858

PATIENT
  Age: 75 Year
  Sex: Male

DRUGS (5)
  1. ERBITUX [Suspect]
     Active Substance: CETUXIMAB
     Indication: Colon cancer
     Route: 041
  2. ENCORAFENIB [Suspect]
     Active Substance: ENCORAFENIB
     Indication: Colon cancer
     Dosage: 300 MG, DAILY
     Route: 065
  3. ENCORAFENIB [Suspect]
     Active Substance: ENCORAFENIB
     Dosage: 150 MG, DAILY
     Route: 065
  4. BINIMETINIB [Suspect]
     Active Substance: BINIMETINIB
     Indication: Colon cancer
     Dosage: 90 MG, DAILY
     Route: 065
  5. BINIMETINIB [Suspect]
     Active Substance: BINIMETINIB
     Dosage: 90 MG, DAILY
     Route: 065

REACTIONS (6)
  - Serous retinal detachment [Recovered/Resolved]
  - Macular oedema [Recovered/Resolved]
  - Skin cancer [Unknown]
  - Lentigo [Unknown]
  - Urticaria [Unknown]
  - Malignant neoplasm progression [Unknown]
